FAERS Safety Report 8136822-3 (Version None)
Quarter: 2012Q1

REPORT INFORMATION
  Report Type: 
  Country: None (occurrence: None)
  Receive Date: 20120214
  Receipt Date: 20120207
  Transmission Date: 20120608
  Serious: Yes (Death, Hospitalization)
  Sender: FDA-Public Use
  Company Number: FR-CELGENEUS-056-C5013-11111228

PATIENT
  Sex: Male
  Weight: 84 kg

DRUGS (15)
  1. MELPHALAN HYDROCHLORIDE [Suspect]
     Indication: MULTIPLE MYELOMA
     Dosage: 22 MILLIGRAM
     Route: 065
     Dates: start: 20090611, end: 20101108
  2. PHENOTYPE TRANSFUSION [Concomitant]
     Dosage: 2 UNITS
     Route: 065
     Dates: start: 20111014, end: 20111014
  3. PREDNISONE TAB [Suspect]
     Indication: MULTIPLE MYELOMA
     Dosage: 170 MILLIGRAM
     Route: 065
     Dates: start: 20090611, end: 20101108
  4. PHENOTYPE TRANSFUSION [Concomitant]
     Dosage: 2 UNITS
     Route: 065
     Dates: start: 20111026, end: 20111026
  5. LEUKOCYTES TRANSFUSION [Concomitant]
     Dosage: 2 UNITS
     Route: 065
     Dates: start: 20111014, end: 20111014
  6. LEUKOCYTES TRANSFUSION [Concomitant]
     Dosage: 2 UNITS
     Route: 065
     Dates: start: 20111026, end: 20111026
  7. LEUKOCYTES TRANSFUSION [Concomitant]
     Dosage: 2 UNITS
     Route: 065
     Dates: start: 20111103, end: 20111103
  8. FOLIC ACID [Concomitant]
     Dosage: 10 MILLIGRAM
     Route: 065
  9. CANDESARTAN CILEXETIL AND HYDROCHLOROTHIAZIDE [Concomitant]
     Dosage: 8 MILLIGRAM
     Route: 065
  10. PHENOTYPE TRANSFUSION [Concomitant]
     Dosage: 2 UNITS
     Route: 065
     Dates: start: 20111107, end: 20111107
  11. THALIDOMIDE [Suspect]
     Indication: MULTIPLE MYELOMA
     Dosage: 200 MILLIGRAM
     Route: 048
     Dates: start: 20090611, end: 20101216
  12. LEUKOCYTES TRANSFUSION [Concomitant]
     Dosage: 2 UNITS
     Route: 065
     Dates: start: 20111107, end: 20111107
  13. VITAMIN B-12 [Concomitant]
     Dosage: 1 VIAL
     Route: 065
  14. PARACETAMOL [Concomitant]
     Indication: HEADACHE
     Route: 065
  15. PHENOTYPE TRANSFUSION [Concomitant]
     Dosage: 2 UNITS
     Route: 065
     Dates: start: 20111103, end: 20111103

REACTIONS (1)
  - ACUTE MYELOID LEUKAEMIA [None]
